FAERS Safety Report 7427647-2 (Version None)
Quarter: 2011Q2

REPORT INFORMATION
  Report Type: 
  Country: None (occurrence: None)
  Receive Date: 20110408
  Receipt Date: 20110328
  Transmission Date: 20111010
  Serious: Yes (Hospitalization)
  Sender: FDA-Public Use
  Company Number: DSJ-2011-00593

PATIENT
  Age: 61 Year
  Sex: Female

DRUGS (8)
  1. MEDICINES FOR OSTEOARTHRITIS [Concomitant]
  2. AMLODIPINE [Suspect]
     Indication: HYPERTENSION
     Dosage: 5 MG,PER ORAL
     Route: 048
     Dates: start: 20100801, end: 20101201
  3. PHENOBARBITAL (PHENOBARBITAL) (PHENOBARBITAL) [Concomitant]
  4. MANIDIPINE (MANIDIPINE) (MANIDIPINE) [Suspect]
     Indication: HYPERTENSION
     Dosage: 10 MG,PER ORAL
     Route: 048
     Dates: start: 20100801, end: 20101201
  5. AMLODIPINE BESYLATE AND OLMESARTAN MEDOXOMIL [Suspect]
     Indication: HYPERTENSION
     Dosage: 40/10MG (1 IN 1 D),PER ORAL
     Route: 047
     Dates: start: 20100801, end: 20101201
  6. PHENYTOIN [Concomitant]
  7. RAMIPRIL [Suspect]
     Indication: HYPERTENSION
     Dosage: 10 MG,PER ORAL
     Route: 048
     Dates: start: 20100801
  8. MEDICINES FOR HYOERCHOLESTEROLEMIA (CHOLESTEROL - AND TRIGLYCERIDE RED [Concomitant]

REACTIONS (4)
  - OEDEMA PERIPHERAL [None]
  - PAIN IN EXTREMITY [None]
  - DRUG INEFFECTIVE [None]
  - HYPERAEMIA [None]
